FAERS Safety Report 25702139 (Version 2)
Quarter: 2025Q3

REPORT INFORMATION
  Report Type: Spontaneous
  Country: US (occurrence: US)
  Receive Date: 20250819
  Receipt Date: 20250915
  Transmission Date: 20251020
  Serious: Yes (Death, Life-Threatening, Other)
  Sender: LABORATOIRES SERB
  Company Number: US-SERB S.A.S.-2182820

PATIENT
  Age: 27 Year
  Sex: Male

DRUGS (4)
  1. CYANOKIT [Suspect]
     Active Substance: HYDROXOCOBALAMIN
     Indication: Toxicity to various agents
  2. NOREPINEPHRINE [Suspect]
     Active Substance: NOREPINEPHRINE
  3. ANGIOTENSIN II [Suspect]
     Active Substance: ANGIOTENSIN II
  4. METHYLENE BLUE [Suspect]
     Active Substance: METHYLENE BLUE

REACTIONS (7)
  - Brain injury [Fatal]
  - Product use in unapproved indication [Unknown]
  - Drug effective for unapproved indication [Unknown]
  - Bradycardia [Unknown]
  - Cardiac arrest [Unknown]
  - Ventricular tachycardia [Not Recovered/Not Resolved]
  - Metabolic acidosis [Not Recovered/Not Resolved]
